FAERS Safety Report 21915028 (Version 1)
Quarter: 2023Q1

REPORT INFORMATION
  Report Type: Spontaneous
  Country: US (occurrence: US)
  Receive Date: 20230126
  Receipt Date: 20230126
  Transmission Date: 20230417
  Serious: No
  Sender: FDA-Public Use
  Company Number: US-CATALYST PHARMACEUTICALS, INC-2022CAT00654

PATIENT
  Age: 76 Year
  Sex: Male
  Weight: 86.168 kg

DRUGS (22)
  1. FIRDAPSE [Suspect]
     Active Substance: AMIFAMPRIDINE PHOSPHATE
     Indication: Myasthenic syndrome
     Dosage: 15 MG, 3X/DAY
     Route: 048
     Dates: start: 2020
  2. ASPIRIN [Concomitant]
     Active Substance: ASPIRIN
     Dosage: 81 MG, 1X/DAY
  3. CYMBALTA [Concomitant]
     Active Substance: DULOXETINE HYDROCHLORIDE
     Dosage: 20 MG, 1X/DAY
  4. FEXOFENADINE [Concomitant]
     Active Substance: FEXOFENADINE HYDROCHLORIDE
     Dosage: 150 MG, 1X/DAY EVERY MORNING
  5. FISH OIL [Concomitant]
     Active Substance: FISH OIL
     Dosage: 1200 MG, 1X/DAY
  6. FLAXSEED [Concomitant]
     Active Substance: FLAX SEED
     Dosage: 1200 MG, 1X/DAY
  7. FLUOROMETHOLONE [Concomitant]
     Active Substance: FLUOROMETHOLONE
     Dosage: 1 DROP, IN EACH EYE 2X/DAY
     Route: 047
  8. GLUCOSAMINE\GLUCOSAMINE SULFATE [Concomitant]
     Active Substance: GLUCOSAMINE\GLUCOSAMINE SULFATE
     Dosage: 1 CAPSULE, 2X/DAY
  9. LYRICA [Concomitant]
     Active Substance: PREGABALIN
     Dosage: 25 MG, 2X/DAY
  10. METFORMIN [Concomitant]
     Active Substance: METFORMIN HYDROCHLORIDE
     Dosage: 1000 MG, 2X/DAY
  11. METOPROLOL [Concomitant]
     Active Substance: METOPROLOL
     Dosage: 25 MG, 1X/DAY
  12. MIRALAX [Concomitant]
     Active Substance: POLYETHYLENE GLYCOL 3350
     Dosage: 1 SCOOP, 1X/DAY
  13. NAPROXEN [Concomitant]
     Active Substance: NAPROXEN
     Dosage: 220 MG, AS NEEDED
  14. NOVOLOG [Concomitant]
     Active Substance: INSULIN ASPART
     Dosage: 34 IU, 1X/DAY
     Route: 058
  15. OMEPRAZOLE [Concomitant]
     Active Substance: OMEPRAZOLE
     Dosage: 20 MG, 1X/DAY
  16. PRAMIPEXOLE [Concomitant]
     Active Substance: PRAMIPEXOLE
     Dosage: 0.325 MG, 2X/DAY
  17. PROBIOTICS NOS [Concomitant]
     Active Substance: PROBIOTICS NOS
     Dosage: 1 CAPSULE, 1X/DAY
  18. PROSTAGENIX [Concomitant]
     Dosage: 1 CAPSULE, 1X/DAY NIGHTLY
  19. SIMVASTATIN [Concomitant]
     Active Substance: SIMVASTATIN
     Dosage: 20 MG, 1X/DAY
  20. CYANOCOBALAMIN\DEXPANTHENOL\NIACINAMIDE\PYRIDOXINE HYDROCHLORIDE\RIBOF [Concomitant]
     Active Substance: CYANOCOBALAMIN\DEXPANTHENOL\NIACINAMIDE\PYRIDOXINE HYDROCHLORIDE\RIBOFLAVIN 5^-PHOSPHATE SODIUM\THIA
     Dosage: UNK, 1X/DAY
  21. SYSTANE COMPLETE [Concomitant]
     Active Substance: PROPYLENE GLYCOL
     Dosage: UNK, AS NEEDED
  22. TRAZODONE [Concomitant]
     Active Substance: TRAZODONE HYDROCHLORIDE
     Dosage: 50 MG, 1X/DAY AT BEDTIME

REACTIONS (5)
  - Oropharyngeal pain [Recovered/Resolved]
  - COVID-19 [Recovering/Resolving]
  - Cough [Recovering/Resolving]
  - Rhinorrhoea [Recovered/Resolved]
  - Fatigue [Recovered/Resolved]

NARRATIVE: CASE EVENT DATE: 20220901
